FAERS Safety Report 10920549 (Version 2)
Quarter: 2015Q2

REPORT INFORMATION
  Report Type: Report from Study
  Country: BR (occurrence: BR)
  Receive Date: 20150317
  Receipt Date: 20150529
  Transmission Date: 20150821
  Serious: Yes (Other)
  Sender: FDA-Public Use
  Company Number: PHHY2015BR021364

PATIENT
  Sex: Female
  Weight: 100 kg

DRUGS (3)
  1. RASILEZ [Suspect]
     Active Substance: ALISKIREN
     Indication: HYPERTENSION
     Dosage: 1 DF, QD (1 TABLET DAILY)
     Route: 048
  2. DIOVAN [Suspect]
     Active Substance: VALSARTAN
     Indication: HYPERTENSION
     Dosage: 1 DF, QD (1 TABLET DAILY)
     Route: 048
     Dates: start: 201212
  3. EXFORGE HCT [Concomitant]
     Active Substance: AMLODIPINE BESYLATE\HYDROCHLOROTHIAZIDE\VALSARTAN
     Indication: HYPERTENSION
     Dosage: 1 DF, QD (1 TABLET DAILY)
     Route: 048

REACTIONS (4)
  - Oedema peripheral [Recovering/Resolving]
  - Joint swelling [Recovered/Resolved]
  - Erythema [Recovered/Resolved]
  - Arthropathy [Recovered/Resolved]
